FAERS Safety Report 14850278 (Version 1)
Quarter: 2018Q2

REPORT INFORMATION
  Report Type: Report from Study
  Country: US (occurrence: US)
  Receive Date: 20180505
  Receipt Date: 20180505
  Transmission Date: 20180711
  Serious: No
  Sender: FDA-Public Use
  Company Number: PHEH2018US017378

PATIENT
  Sex: Female

DRUGS (1)
  1. COSENTYX [Suspect]
     Active Substance: SECUKINUMAB
     Indication: PATERNAL EXPOSURE DURING PREGNANCY
     Dosage: FETAL DRUG EXPOSURE VIA PARTNER: NOT PROVIDED
     Route: 050

REACTIONS (2)
  - Exposure via partner [Unknown]
  - Normal newborn [Unknown]
